FAERS Safety Report 6764400-7 (Version None)
Quarter: 2010Q2

REPORT INFORMATION
  Report Type: 
  Country: None (occurrence: None)
  Receive Date: 20100610
  Receipt Date: 20100528
  Transmission Date: 20101027
  Serious: Yes (Other)
  Sender: FDA-Public Use
  Company Number: GB-ELI_LILLY_AND_COMPANY-GB201005007564

PATIENT
  Age: 55 Year
  Sex: Male
  Weight: 100.6 kg

DRUGS (13)
  1. BYETTA [Suspect]
     Indication: CEREBROVASCULAR ACCIDENT
     Dosage: UNK, UNKNOWN
     Route: 058
     Dates: start: 20100119
  2. BYETTA [Suspect]
     Dosage: 10 UG, 2/D
     Route: 058
     Dates: end: 20100416
  3. AMLODIPINE [Concomitant]
  4. ATENOLOL [Concomitant]
  5. ATORVASTATIN [Concomitant]
  6. CANDESARTAN CILEXETIL [Concomitant]
  7. CAPTOPRIL [Concomitant]
  8. EZETIMIBE [Concomitant]
  9. FUROSEMIDE [Concomitant]
  10. LEVEMIR [Concomitant]
  11. OMEPRAZOLE [Concomitant]
  12. WARFARIN SODIUM [Concomitant]
  13. METFORMIN [Concomitant]

REACTIONS (6)
  - DECREASED APPETITE [None]
  - GLYCOSYLATED HAEMOGLOBIN INCREASED [None]
  - NAUSEA [None]
  - OFF LABEL USE [None]
  - RENAL FAILURE ACUTE [None]
  - WEIGHT DECREASED [None]
